FAERS Safety Report 22088773 (Version 1)
Quarter: 2023Q1

REPORT INFORMATION
  Report Type: Other
  Country: NO (occurrence: None)
  Receive Date: 20230313
  Receipt Date: 20230313
  Transmission Date: 20230418
  Serious: Yes (Death, Hospitalization, Other)
  Sender: FDA-Public Use
  Company Number: NO-ROCHE-3307461

PATIENT

DRUGS (1)
  1. RITUXIMAB [Suspect]
     Active Substance: RITUXIMAB
     Indication: Multiple sclerosis
     Dosage: SUBSEQUENTLY 500 MG EVERY SIX MONTHS
     Route: 042

REACTIONS (2)
  - COVID-19 [Fatal]
  - Off label use [Unknown]
